FAERS Safety Report 7550648-0 (Version None)
Quarter: 2011Q2

REPORT INFORMATION
  Report Type: 
  Country: None (occurrence: None)
  Receive Date: 20110616
  Receipt Date: 20110607
  Transmission Date: 20111010
  Serious: Yes (Death, Disabling)
  Sender: FDA-Public Use
  Company Number: US-CELGENEUS-163-21880-10122589

PATIENT
  Sex: Female

DRUGS (14)
  1. REVLIMID [Suspect]
     Indication: MULTIPLE MYELOMA
     Dosage: 10 MILLIGRAM
     Route: 048
     Dates: start: 20100830, end: 20101217
  2. VICODIN ES [Concomitant]
     Route: 065
  3. VITAMIN B-12 [Concomitant]
     Route: 065
  4. FENTANYL [Concomitant]
     Route: 065
  5. BACLOFEN [Concomitant]
     Route: 065
  6. VITAMIN D [Concomitant]
     Route: 065
  7. DECADRON [Concomitant]
     Route: 065
  8. ASPIRIN [Concomitant]
     Route: 065
  9. ZOFRAN [Concomitant]
     Route: 065
  10. DILAUDID [Concomitant]
     Route: 065
  11. GABAPENTIN [Concomitant]
     Route: 065
  12. NAHCO3 [Concomitant]
     Route: 065
  13. REGLAN [Concomitant]
     Route: 065
  14. ATIVAN [Concomitant]
     Route: 065

REACTIONS (2)
  - DEATH [None]
  - NEUROPATHY PERIPHERAL [None]
